FAERS Safety Report 5763863-3 (Version None)
Quarter: 2008Q2

REPORT INFORMATION
  Report Type: 
  Country: None (occurrence: None)
  Receive Date: 20080606
  Receipt Date: 20080606
  Transmission Date: 20081010
  Serious: Yes (Other)
  Sender: FDA-Public Use
  Company Number: None

PATIENT
  Age: 9 Year
  Sex: Female
  Weight: 31.7518 kg

DRUGS (2)
  1. SINGULAIR [Suspect]
     Indication: CYSTIC FIBROSIS
     Dosage: 5 MG  1 X PER DAY  PO
     Route: 048
     Dates: start: 20070301, end: 20080520
  2. SINGULAIR [Suspect]
     Indication: MULTIPLE ALLERGIES
     Dosage: 5 MG  1 X PER DAY  PO
     Route: 048
     Dates: start: 20070301, end: 20080520

REACTIONS (4)
  - ANXIETY [None]
  - DEPRESSION [None]
  - INSOMNIA [None]
  - PANIC ATTACK [None]
